FAERS Safety Report 10996456 (Version 4)
Quarter: 2015Q3

REPORT INFORMATION
  Report Type: Spontaneous
  Country: US (occurrence: US)
  Receive Date: 20150408
  Receipt Date: 20150703
  Transmission Date: 20151125
  Serious: Yes (Other)
  Sender: FDA-Public Use
  Company Number: US-BEH-2015050090

PATIENT
  Age: 17 Year
  Sex: Male
  Weight: 90 kg

DRUGS (1)
  1. HIZENTRA [Suspect]
     Active Substance: HUMAN IMMUNOGLOBULIN G
     Indication: HYPOGAMMAGLOBULINAEMIA
     Dosage: MARCH 2015
     Route: 058

REACTIONS (3)
  - Suspected transmission of an infectious agent via product [Recovered/Resolved]
  - Hepatitis B [Recovered/Resolved]
  - Hepatitis B antibody positive [Recovered/Resolved]

NARRATIVE: CASE EVENT DATE: 20150310
